FAERS Safety Report 5238368-9 (Version None)
Quarter: 2007Q1

REPORT INFORMATION
  Report Type: 
  Country: None (occurrence: None)
  Receive Date: 20061208
  Receipt Date: 20050321
  Transmission Date: 20070707
  Serious: Yes (Other)
  Sender: FDA-Public Use
  Company Number: 2005UW04435

PATIENT
  Age: 49 Year
  Sex: Female
  Weight: 74.842 kg

DRUGS (9)
  1. CRESTOR [Suspect]
     Indication: BLOOD CHOLESTEROL INCREASED
     Dosage: 10 MG PO
     Route: 048
  2. MULTI-VITAMINS [Concomitant]
  3. SYNTHROID [Concomitant]
  4. VITAMIN B-12 [Concomitant]
  5. CLARINEX [Concomitant]
  6. TOPROL-XL [Concomitant]
  7. DETROL [Concomitant]
  8. NEXIUM [Concomitant]
  9. ZOLOFT [Concomitant]

REACTIONS (1)
  - BURNING SENSATION [None]
